FAERS Safety Report 8967830 (Version 1)
Quarter: 2012Q4

REPORT INFORMATION
  Report Type: 
  Country: AR (occurrence: AR)
  Receive Date: 20121218
  Receipt Date: 20121218
  Transmission Date: 20130627
  Serious: Yes (Death, Hospitalization)
  Sender: FDA-Public Use
  Company Number: PHHY2012AR116020

PATIENT
  Age: 82 Year
  Sex: Male

DRUGS (1)
  1. EXELON PATCH [Suspect]
     Dosage: 4.6 mg, Daily
     Route: 062
     Dates: start: 201207, end: 20121022

REACTIONS (4)
  - Cardio-respiratory arrest [Fatal]
  - Intestinal obstruction [Unknown]
  - Abdominal distension [Unknown]
  - Infrequent bowel movements [Unknown]
